FAERS Safety Report 17057192 (Version 1)
Quarter: 2019Q4

REPORT INFORMATION
  Report Type: Spontaneous
  Country: FR (occurrence: FR)
  Receive Date: 20191121
  Receipt Date: 20191121
  Transmission Date: 20200122
  Serious: Yes (Death)
  Sender: FDA-Public Use
  Company Number: FR-ACCORD-161400

PATIENT
  Age: 83 Year
  Sex: Male
  Weight: 56.8 kg

DRUGS (8)
  1. FUROSEMIDE. [Suspect]
     Active Substance: FUROSEMIDE
     Indication: CARDIAC FAILURE
     Route: 048
  2. KARDEGIC [Suspect]
     Active Substance: ASPIRIN DL-LYSINE
     Indication: CARDIOVASCULAR EVENT PROPHYLAXIS
     Dosage: STRENGTH-75 MG
     Route: 048
  3. ATORVASTATIN/ATORVASTATIN CALCIUM [Suspect]
     Active Substance: ATORVASTATIN CALCIUM
     Indication: DYSLIPIDAEMIA
     Route: 048
  4. MIANSERIN/MIANSERIN HYDROCHLORIDE [Suspect]
     Active Substance: MIANSERIN\MIANSERIN HYDROCHLORIDE
     Indication: DEPRESSION
     Route: 048
     Dates: start: 20190905
  5. TADALAFIL. [Suspect]
     Active Substance: TADALAFIL
     Indication: PULMONARY ARTERIAL HYPERTENSION
     Route: 048
     Dates: start: 20190828
  6. LANSOPRAZOLE. [Suspect]
     Active Substance: LANSOPRAZOLE
     Indication: PROPHYLAXIS AGAINST GASTROINTESTINAL ULCER
     Route: 048
  7. SERESTA [Suspect]
     Active Substance: OXAZEPAM
     Indication: ANXIETY
     Dosage: 10 MG TABLET
     Route: 048
  8. TRACLEER [Suspect]
     Active Substance: BOSENTAN
     Indication: PULMONARY ARTERIAL HYPERTENSION
     Dosage: STRENGTH-62.5 MG
     Route: 048
     Dates: start: 20190826, end: 20191018

REACTIONS (2)
  - Agranulocytosis [Fatal]
  - Neutropenia [Fatal]

NARRATIVE: CASE EVENT DATE: 20191016
